FAERS Safety Report 12440005 (Version 2)
Quarter: 2016Q3

REPORT INFORMATION
  Report Type: Spontaneous
  Country: NL (occurrence: NL)
  Receive Date: 20160606
  Receipt Date: 20160809
  Transmission Date: 20161109
  Serious: Yes (Death, Other)
  Sender: FDA-Public Use
  Company Number: NL-GILEAD-2016-0215630

PATIENT
  Age: 80 Year
  Sex: Female

DRUGS (3)
  1. RITUXIMAB [Concomitant]
     Active Substance: RITUXIMAB
     Indication: CHRONIC LYMPHOCYTIC LEUKAEMIA
     Dosage: 375 MG/M2, UNK
     Route: 042
     Dates: start: 20160401
  2. METOCLOPRAMIDE. [Concomitant]
     Active Substance: METOCLOPRAMIDE
     Indication: ANTIEMETIC SUPPORTIVE CARE
     Dosage: 10 MG, TID
     Route: 048
     Dates: start: 20160401
  3. ZYDELIG [Suspect]
     Active Substance: IDELALISIB
     Indication: CHRONIC LYMPHOCYTIC LEUKAEMIA
     Dosage: 150 MG, BID
     Route: 065
     Dates: start: 20160401

REACTIONS (5)
  - Nausea [Unknown]
  - Epistaxis [Unknown]
  - Lymphocyte count decreased [Unknown]
  - Gastric haemorrhage [Fatal]
  - Fatigue [Unknown]

NARRATIVE: CASE EVENT DATE: 201604
